FAERS Safety Report 25898359 (Version 3)
Quarter: 2025Q4

REPORT INFORMATION
  Report Type: Spontaneous
  Country: AR (occurrence: AR)
  Receive Date: 20251008
  Receipt Date: 20251110
  Transmission Date: 20260117
  Serious: Yes (Other)
  Sender: AMGEN
  Company Number: AR-AMGEN-ARGSP2025198183

PATIENT
  Sex: Male

DRUGS (1)
  1. LUMAKRAS [Suspect]
     Active Substance: SOTORASIB
     Indication: Non-small cell lung cancer stage IV
     Dosage: 480 MILLIGRAM, QD
     Route: 065
     Dates: start: 20250901

REACTIONS (7)
  - Non-small cell lung cancer [Unknown]
  - Off label use [Unknown]
  - Diarrhoea [Unknown]
  - Alanine aminotransferase increased [Recovered/Resolved]
  - Aspartate aminotransferase increased [Recovered/Resolved]
  - Blood alkaline phosphatase increased [Recovered/Resolved]
  - Blood bilirubin increased [Recovered/Resolved]

NARRATIVE: CASE EVENT DATE: 20250901
